FAERS Safety Report 6453850-4 (Version None)
Quarter: 2009Q4

REPORT INFORMATION
  Report Type: 
  Country: None (occurrence: None)
  Receive Date: 20091116
  Receipt Date: 20090917
  Transmission Date: 20100525
  Serious: No
  Sender: FDA-Public Use
  Company Number: 2009010434

PATIENT
  Age: 12 Year
  Sex: Male

DRUGS (2)
  1. MODAFINIL [Suspect]
     Indication: NARCOLEPSY
     Dosage: 200 MG (200 MG,1 IN 1 D),ORAL; 100 MG (100 MG,1 IN 1 D), ORAL
     Route: 048
     Dates: start: 20080308, end: 20080321
  2. MODAFINIL [Suspect]
     Indication: NARCOLEPSY
     Dosage: 200 MG (200 MG,1 IN 1 D),ORAL; 100 MG (100 MG,1 IN 1 D), ORAL
     Route: 048
     Dates: start: 20080322

REACTIONS (2)
  - HEADACHE [None]
  - RASH [None]
